FAERS Safety Report 6849825-3 (Version None)
Quarter: 2010Q3

REPORT INFORMATION
  Report Type: 
  Country: None (occurrence: None)
  Receive Date: 20100716
  Receipt Date: 20081118
  Transmission Date: 20110219
  Serious: No
  Sender: FDA-Public Use
  Company Number: US-PFIZER INC-2007084675

PATIENT
  Sex: Female
  Weight: 83.5 kg

DRUGS (2)
  1. CHANTIX [Suspect]
     Indication: SMOKING CESSATION THERAPY
     Route: 048
     Dates: start: 20070802
  2. PAXIL [Concomitant]
     Indication: ANXIETY

REACTIONS (4)
  - ABNORMAL DREAMS [None]
  - INSOMNIA [None]
  - IRRITABILITY [None]
  - VERTIGO [None]
